FAERS Safety Report 5448438-8 (Version None)
Quarter: 2007Q3

REPORT INFORMATION
  Report Type: 
  Country: None (occurrence: None)
  Receive Date: 20070906
  Receipt Date: 20070830
  Transmission Date: 20080115
  Serious: Yes (Hospitalization)
  Sender: FDA-Public Use
  Company Number: 20074056

PATIENT
  Sex: Male

DRUGS (1)
  1. LIORESAL [Suspect]
     Indication: MUSCLE SPASTICITY
     Dosage: DAILY, INTRATHECAL
     Route: 037

REACTIONS (16)
  - AGITATION [None]
  - BODY TEMPERATURE INCREASED [None]
  - CLONUS [None]
  - CONVULSION [None]
  - DRUG WITHDRAWAL SYNDROME [None]
  - FLUSHING [None]
  - GASTROINTESTINAL HYPOMOTILITY [None]
  - HICCUPS [None]
  - HYPERMETABOLISM [None]
  - ILL-DEFINED DISORDER [None]
  - MUSCLE SPASTICITY [None]
  - POST PROCEDURAL COMPLICATION [None]
  - SEPSIS [None]
  - STAPHYLOCOCCAL INFECTION [None]
  - VOMITING [None]
  - WOUND INFECTION [None]
